FAERS Safety Report 18383763 (Version 4)
Quarter: 2021Q1

REPORT INFORMATION
  Report Type: Report from Study
  Country: CA (occurrence: CA)
  Receive Date: 20201014
  Receipt Date: 20210302
  Transmission Date: 20210419
  Serious: Yes (Hospitalization, Other)
  Sender: FDA-Public Use
  Company Number: CA-HLS-202001588

PATIENT
  Age: 64 Year
  Sex: Female

DRUGS (19)
  1. SPIRONOLACTONE. [Concomitant]
     Active Substance: SPIRONOLACTONE
     Dosage: 12.5MG DAILY
     Route: 048
  2. APO?DULOXETINE [Concomitant]
     Active Substance: DULOXETINE
     Dosage: 90MG DAILY
     Route: 048
  3. OMEGA [Concomitant]
     Dosage: 40 MG DAILY
     Route: 042
  4. PANTOPRAZOLE [Concomitant]
     Active Substance: PANTOPRAZOLE
     Dosage: 40MG NIGHTLY
     Route: 048
  5. SALBUTAMOL [Concomitant]
     Active Substance: ALBUTEROL
     Dosage: 200MG PRN
     Route: 002
  6. PRAXIS ASA [Concomitant]
     Dosage: 81MG DAILY
     Route: 048
  7. ADVAIR 500 DISKUS [Concomitant]
     Dosage: 500MCG PER INHALATION
     Route: 065
     Dates: start: 20201001
  8. ABILIFY [Concomitant]
     Active Substance: ARIPIPRAZOLE
     Dosage: 2MG DAILY
     Route: 048
  9. CRESTOR [Concomitant]
     Active Substance: ROSUVASTATIN CALCIUM
     Dosage: 10 MG NIGHTLY
     Route: 048
  10. RELAXA [Concomitant]
     Dosage: 17 G DAILY
     Route: 048
  11. CLOZARIL [Suspect]
     Active Substance: CLOZAPINE
     Indication: PRODUCT USED FOR UNKNOWN INDICATION
     Dosage: 350MG DAILY AT BED TIME
     Route: 048
     Dates: start: 20150129, end: 20210226
  12. SYNTHROID [Concomitant]
     Active Substance: LEVOTHYROXINE SODIUM
     Dosage: 0.125 MG
     Route: 048
  13. SINGULAIR [Concomitant]
     Active Substance: MONTELUKAST SODIUM
     Dosage: UNKNOWN
     Route: 065
  14. DUCOSATE [Concomitant]
     Dosage: 100MG TWICE DAILY
     Route: 048
  15. TEVA?CALCIUM [Concomitant]
     Dosage: 500MG DAILY
     Route: 048
  16. MULTIVITAMINS [Concomitant]
     Active Substance: VITAMINS
     Dosage: 1 TABLET DAILY
     Route: 048
  17. TEVA?RAMPIRIL [Concomitant]
     Dosage: 2.5 MG DAILY
     Route: 048
  18. ACETAMINOPHEN. [Concomitant]
     Active Substance: ACETAMINOPHEN
     Dosage: 650?975MG  PRN (2?3 TABLETS)
     Route: 048
  19. CLOZARIL [Suspect]
     Active Substance: CLOZAPINE
     Indication: PRODUCT USED FOR UNKNOWN INDICATION
     Route: 048
     Dates: start: 20150129, end: 20210226

REACTIONS (11)
  - Left ventricular dysfunction [Unknown]
  - Orthopnoea [Unknown]
  - Electrocardiogram QT prolonged [Unknown]
  - Hypotension [Unknown]
  - Dizziness [Unknown]
  - Dyspnoea [Unknown]
  - Electrocardiogram ST segment depression [Unknown]
  - Cardiomyopathy [Unknown]
  - Nausea [Unknown]
  - Treatment noncompliance [Unknown]
  - Rales [Unknown]

NARRATIVE: CASE EVENT DATE: 20200930
